FAERS Safety Report 21244490 (Version 1)
Quarter: 2022Q3

REPORT INFORMATION
  Report Type: Report from Study
  Country: UG (occurrence: UG)
  Receive Date: 20220823
  Receipt Date: 20220823
  Transmission Date: 20221027
  Serious: Yes (Other)
  Sender: FDA-Public Use
  Company Number: UG-ViiV Healthcare Limited-UG2022GSK121043

PATIENT

DRUGS (1)
  1. DOLUTEGRAVIR [Suspect]
     Active Substance: DOLUTEGRAVIR
     Indication: HIV infection
     Dosage: UNK

REACTIONS (4)
  - Male sexual dysfunction [Unknown]
  - Erectile dysfunction [Unknown]
  - Psychiatric symptom [Unknown]
  - Partner stress [Unknown]
